FAERS Safety Report 23534126 (Version 1)
Quarter: 2024Q1

REPORT INFORMATION
  Report Type: Spontaneous
  Country: CA (occurrence: CA)
  Receive Date: 20240216
  Receipt Date: 20240216
  Transmission Date: 20240410
  Serious: Yes (Hospitalization, Other)
  Sender: FDA-Public Use
  Company Number: CA-HLS-202400372

PATIENT
  Age: 74 Year
  Sex: Female

DRUGS (43)
  1. ALENDRONATE SODIUM [Concomitant]
     Active Substance: ALENDRONATE SODIUM
     Indication: Osteoporosis
     Dosage: 1 EVERY 1 WEEKS?AMOUNT: 70 MILLIGRAM
     Route: 065
  2. ARIPIPRAZOLE [Suspect]
     Active Substance: ARIPIPRAZOLE
     Indication: Product used for unknown indication
     Dosage: 1 EVERY 1 DAYS?AMOUNT: 20 MILLIGRAM?UNKNOWN DOSAGE FORM
     Route: 065
  3. ARIPIPRAZOLE [Suspect]
     Active Substance: ARIPIPRAZOLE
     Indication: Product used for unknown indication
     Dosage: 1 EVERY 1 DAYS?AMOUNT: 30 MILLIGRAM?NOT SPECIFIED DOSAGE FORM
     Route: 065
  4. CLOZAPINE [Suspect]
     Active Substance: CLOZAPINE
     Indication: Schizophrenia
     Dosage: AMOUNT: 100 MILLIGRAM?UNKNOWN DOSAGE FORM
     Route: 065
  5. CLOZAPINE [Suspect]
     Active Substance: CLOZAPINE
     Indication: Schizophrenia
     Dosage: AMOUNT: 25 MILLIGRAM?UNKNOWN DOSAGE FORM
     Route: 065
  6. CLOZAPINE [Suspect]
     Active Substance: CLOZAPINE
     Indication: Schizophrenia
     Dosage: 1 EVERY 1 DAYS?AMOUNT: 150 MILLIGRAM?UNKNOWN DOSAGE FORM
     Route: 065
  7. CLOZAPINE [Suspect]
     Active Substance: CLOZAPINE
     Indication: Schizophrenia
     Dosage: 1 EVERY 1 DAYS?AMOUNT: 50 MILLIGRAM?TABLETS DOSAGE FORM
     Route: 065
  8. MELATONIN [Concomitant]
     Active Substance: MELATONIN
     Indication: Insomnia
     Dosage: 1 EVERY 1 DAYS?AMOUNT: 3 MILLIGRAM?NOT SPECIFIED DOSAGE FORM
     Route: 065
  9. RIVAROXABAN [Concomitant]
     Active Substance: RIVAROXABAN
     Indication: Atrial fibrillation
     Dosage: 1 EVERY 1 DAYS?AMOUNT: 20 MILLIGRAM
     Route: 065
  10. SENNOSIDES [Concomitant]
     Active Substance: SENNOSIDES
     Indication: Constipation
     Dosage: 2 EVERY 1 DAYS?AMOUNT: 12 MILLIGRAM?NOT SPECIFIED DOSAGE FORM
     Route: 065
  11. ALENDRONATE CALCIUM [Concomitant]
     Active Substance: ALENDRONATE CALCIUM
     Indication: Atrial fibrillation
     Dosage: 1 EVERY 1 DAYS?AMOUNT: 150 MILLIGRAM?UNKNOWN DOSAGE FORM
     Route: 065
  12. ALENDRONATE CALCIUM [Concomitant]
     Active Substance: ALENDRONATE CALCIUM
     Indication: Insomnia
     Dosage: 1 EVERY 1 DAYS?AMOUNT: 150 MILLIGRAM?UNKNOWN DOSAGE FORM
     Route: 065
  13. ALENDRONATE CALCIUM [Concomitant]
     Active Substance: ALENDRONATE CALCIUM
     Indication: Osteoporosis
     Dosage: 1 EVERY 1 DAYS?AMOUNT: 150 MILLIGRAM?UNKNOWN DOSAGE FORM
     Route: 065
  14. ALENDRONATE CALCIUM [Concomitant]
     Active Substance: ALENDRONATE CALCIUM
     Indication: Schizophrenia
     Dosage: 1 EVERY 1 DAYS?AMOUNT: 150 MILLIGRAM?UNKNOWN DOSAGE FORM
     Route: 065
  15. ALENDRONATE CALCIUM [Concomitant]
     Active Substance: ALENDRONATE CALCIUM
     Indication: Atrial fibrillation
     Dosage: 1 EVERY 1 DAYS?AMOUNT: 20 MILLIGRAM
     Route: 065
  16. ALENDRONATE CALCIUM [Concomitant]
     Active Substance: ALENDRONATE CALCIUM
     Indication: Insomnia
     Dosage: 1 EVERY 1 DAYS?AMOUNT: 20 MILLIGRAM
     Route: 065
  17. ALENDRONATE CALCIUM [Concomitant]
     Active Substance: ALENDRONATE CALCIUM
     Indication: Osteoporosis
     Dosage: 1 EVERY 1 DAYS?AMOUNT: 20 MILLIGRAM
     Route: 065
  18. ALENDRONATE CALCIUM [Concomitant]
     Active Substance: ALENDRONATE CALCIUM
     Indication: Schizophrenia
     Dosage: 1 EVERY 1 DAYS?AMOUNT: 20 MILLIGRAM
     Route: 065
  19. ALENDRONATE CALCIUM [Concomitant]
     Active Substance: ALENDRONATE CALCIUM
     Indication: Atrial fibrillation
     Dosage: 1 EVERY 1 DAYS?AMOUNT: 20 MILLIGRAM?UNKNOWN DOSAGE FORM
     Route: 065
  20. ALENDRONATE CALCIUM [Concomitant]
     Active Substance: ALENDRONATE CALCIUM
     Indication: Insomnia
     Dosage: 1 EVERY 1 DAYS?AMOUNT: 20 MILLIGRAM?UNKNOWN DOSAGE FORM
     Route: 065
  21. ALENDRONATE CALCIUM [Concomitant]
     Active Substance: ALENDRONATE CALCIUM
     Indication: Osteoporosis
     Dosage: 1 EVERY 1 DAYS?AMOUNT: 20 MILLIGRAM?UNKNOWN DOSAGE FORM
     Route: 065
  22. ALENDRONATE CALCIUM [Concomitant]
     Active Substance: ALENDRONATE CALCIUM
     Indication: Schizophrenia
     Dosage: 1 EVERY 1 DAYS?AMOUNT: 20 MILLIGRAM?UNKNOWN DOSAGE FORM
     Route: 065
  23. ALENDRONATE CALCIUM [Concomitant]
     Active Substance: ALENDRONATE CALCIUM
     Indication: Atrial fibrillation
     Dosage: 1 EVERY 1 DAYS?AMOUNT: 3 MILLIGRAM?NOT SPECIFIED DOSAGE FORM
     Route: 065
  24. ALENDRONATE CALCIUM [Concomitant]
     Active Substance: ALENDRONATE CALCIUM
     Indication: Insomnia
     Dosage: 1 EVERY 1 DAYS?AMOUNT: 3 MILLIGRAM?NOT SPECIFIED DOSAGE FORM
     Route: 065
  25. ALENDRONATE CALCIUM [Concomitant]
     Active Substance: ALENDRONATE CALCIUM
     Indication: Osteoporosis
     Dosage: 1 EVERY 1 DAYS?AMOUNT: 3 MILLIGRAM?NOT SPECIFIED DOSAGE FORM
     Route: 065
  26. ALENDRONATE CALCIUM [Concomitant]
     Active Substance: ALENDRONATE CALCIUM
     Indication: Schizophrenia
     Dosage: 1 EVERY 1 DAYS?AMOUNT: 3 MILLIGRAM?NOT SPECIFIED DOSAGE FORM
     Route: 065
  27. ALENDRONATE CALCIUM [Concomitant]
     Active Substance: ALENDRONATE CALCIUM
     Indication: Atrial fibrillation
     Dosage: 1 EVERY 1 DAYS?AMOUNT: 30 MILLIGRAM?NOT SPECIFIED DOSAGE FORM
     Route: 065
  28. ALENDRONATE CALCIUM [Concomitant]
     Active Substance: ALENDRONATE CALCIUM
     Indication: Insomnia
     Dosage: 1 EVERY 1 DAYS?AMOUNT: 30 MILLIGRAM?NOT SPECIFIED DOSAGE FORM
     Route: 065
  29. ALENDRONATE CALCIUM [Concomitant]
     Active Substance: ALENDRONATE CALCIUM
     Indication: Osteoporosis
     Dosage: 1 EVERY 1 DAYS?AMOUNT: 30 MILLIGRAM?NOT SPECIFIED DOSAGE FORM
     Route: 065
  30. ALENDRONATE CALCIUM [Concomitant]
     Active Substance: ALENDRONATE CALCIUM
     Indication: Schizophrenia
     Dosage: 1 EVERY 1 DAYS?AMOUNT: 30 MILLIGRAM?NOT SPECIFIED DOSAGE FORM
     Route: 065
  31. ALENDRONATE CALCIUM [Concomitant]
     Active Substance: ALENDRONATE CALCIUM
     Indication: Atrial fibrillation
     Dosage: 1 EVERY 1 DAYS?AMOUNT: 50 MILLIGRAM?UNKNOWN DOSAGE FORM
     Route: 065
  32. ALENDRONATE CALCIUM [Concomitant]
     Active Substance: ALENDRONATE CALCIUM
     Indication: Insomnia
     Dosage: 1 EVERY 1 DAYS?AMOUNT: 50 MILLIGRAM?UNKNOWN DOSAGE FORM
     Route: 065
  33. ALENDRONATE CALCIUM [Concomitant]
     Active Substance: ALENDRONATE CALCIUM
     Indication: Osteoporosis
     Dosage: 1 EVERY 1 DAYS?AMOUNT: 50 MILLIGRAM?UNKNOWN DOSAGE FORM
     Route: 065
  34. ALENDRONATE CALCIUM [Concomitant]
     Active Substance: ALENDRONATE CALCIUM
     Indication: Schizophrenia
     Dosage: 1 EVERY 1 DAYS?AMOUNT: 50 MILLIGRAM?UNKNOWN DOSAGE FORM
     Route: 065
  35. ALENDRONATE CALCIUM [Concomitant]
     Active Substance: ALENDRONATE CALCIUM
     Indication: Atrial fibrillation
     Dosage: 1 EVERY 1 WEEKS?AMOUNT: 70 MILLIGRAM?UNKNOWN DOSAGE FORM
     Route: 065
  36. ALENDRONATE CALCIUM [Concomitant]
     Active Substance: ALENDRONATE CALCIUM
     Indication: Insomnia
     Dosage: 1 EVERY 1 WEEKS?AMOUNT: 70 MILLIGRAM?UNKNOWN DOSAGE FORM
     Route: 065
  37. ALENDRONATE CALCIUM [Concomitant]
     Active Substance: ALENDRONATE CALCIUM
     Indication: Osteoporosis
     Dosage: 1 EVERY 1 WEEKS?AMOUNT: 70 MILLIGRAM?UNKNOWN DOSAGE FORM
     Route: 065
  38. ALENDRONATE CALCIUM [Concomitant]
     Active Substance: ALENDRONATE CALCIUM
     Indication: Schizophrenia
     Dosage: 1 EVERY 1 WEEKS?AMOUNT: 70 MILLIGRAM?UNKNOWN DOSAGE FORM
     Route: 065
  39. ALENDRONATE CALCIUM [Concomitant]
     Active Substance: ALENDRONATE CALCIUM
     Indication: Atrial fibrillation
     Dosage: TABLETS DOSAGE FORM
     Route: 065
  40. ALENDRONATE CALCIUM [Concomitant]
     Active Substance: ALENDRONATE CALCIUM
     Indication: Insomnia
     Dosage: TABLETS DOSAGE FORM
     Route: 065
  41. ALENDRONATE CALCIUM [Concomitant]
     Active Substance: ALENDRONATE CALCIUM
     Indication: Osteoporosis
     Dosage: TABLETS DOSAGE FORM
     Route: 065
  42. ALENDRONATE CALCIUM [Concomitant]
     Active Substance: ALENDRONATE CALCIUM
     Indication: Schizophrenia
     Dosage: TABLETS DOSAGE FORM
     Route: 065
  43. OLANZAPINE [Suspect]
     Active Substance: OLANZAPINE
     Indication: Schizophrenia
     Dosage: EVERY 1 DAYS?AMOUNT: 15 MILLIGRAM?NOT SPECIFIED DOSAGE FORM
     Route: 065

REACTIONS (8)
  - Balance disorder [Not Recovered/Not Resolved]
  - C-reactive protein increased [Not Recovered/Not Resolved]
  - Drug ineffective [Recovered/Resolved]
  - Fall [Recovered/Resolved]
  - Leukocytosis [Not Recovered/Not Resolved]
  - Loss of personal independence in daily activities [Recovered/Resolved]
  - Myoclonus [Recovered/Resolved]
  - Psychotic symptom [Not Recovered/Not Resolved]
